FAERS Safety Report 5885171-2 (Version None)
Quarter: 2008Q3

REPORT INFORMATION
  Report Type: 
  Country: None (occurrence: None)
  Receive Date: 20080915
  Receipt Date: 20080915
  Transmission Date: 20090109
  Serious: Yes (Hospitalization, Other)
  Sender: FDA-Public Use
  Company Number: None

PATIENT
  Age: 61 Year
  Sex: Female
  Weight: 70.3075 kg

DRUGS (2)
  1. CHANTIX [Suspect]
     Indication: SMOKING CESSATION THERAPY
     Dosage: 1.0 MG 2X DAY FOR 1 WEEK PO; 0.5 MG 2 DAY FOR 7 WEEKS PO
     Route: 048
     Dates: start: 20070514, end: 20070710
  2. ... [Concomitant]

REACTIONS (8)
  - ANGER [None]
  - ANTISOCIAL BEHAVIOUR [None]
  - ANXIETY [None]
  - FLIGHT OF IDEAS [None]
  - INSOMNIA [None]
  - LIBIDO DECREASED [None]
  - PERSONALITY CHANGE [None]
  - SUICIDAL IDEATION [None]
